FAERS Safety Report 17197044 (Version 1)
Quarter: 2019Q4

REPORT INFORMATION
  Report Type: Spontaneous
  Country: US (occurrence: US)
  Receive Date: 20191224
  Receipt Date: 20191224
  Transmission Date: 20200122
  Serious: No
  Sender: FDA-Public Use
  Company Number: US-SA-2019SA356417

PATIENT
  Sex: Male
  Weight: 75.8 kg

DRUGS (2)
  1. MULTAQ [Suspect]
     Active Substance: DRONEDARONE
     Dosage: UNK UNK, UNK
     Route: 065
  2. SOTALOL. [Concomitant]
     Active Substance: SOTALOL
     Dosage: UNK UNK, UNK
     Route: 065

REACTIONS (2)
  - Dyspnoea [Unknown]
  - Weight decreased [Unknown]
